FAERS Safety Report 5190374-9 (Version None)
Quarter: 2006Q4

REPORT INFORMATION
  Report Type: 
  Country: None (occurrence: None)
  Receive Date: 20061222
  Receipt Date: 20061213
  Transmission Date: 20070319
  Serious: Yes (Hospitalization)
  Sender: FDA-Public Use
  Company Number: FR-AVENTIS-200614406FR

PATIENT
  Age: 63 Year
  Sex: Female
  Weight: 70 kg

DRUGS (4)
  1. RIFADIN [Suspect]
     Indication: SEPSIS
     Dates: start: 20061001
  2. RIFADIN [Suspect]
     Indication: PROPIONIBACTERIUM INFECTION
     Dates: start: 20061001
  3. AMOXICILLIN [Concomitant]
     Indication: SEPSIS
     Dates: start: 20061001
  4. AMOXICILLIN [Concomitant]
     Indication: PROPIONIBACTERIUM INFECTION
     Dates: start: 20061001

REACTIONS (6)
  - ALANINE AMINOTRANSFERASE INCREASED [None]
  - ASPARTATE AMINOTRANSFERASE INCREASED [None]
  - BLOOD ALKALINE PHOSPHATASE INCREASED [None]
  - CHOLESTASIS [None]
  - GAMMA-GLUTAMYLTRANSFERASE INCREASED [None]
  - NAUSEA [None]
